FAERS Safety Report 6998602-1 (Version None)
Quarter: 2010Q3

REPORT INFORMATION
  Report Type: 
  Country: None (occurrence: None)
  Receive Date: 20100920
  Receipt Date: 20070627
  Transmission Date: 20110219
  Serious: Yes (Hospitalization, Other)
  Sender: FDA-Public Use
  Company Number: US-ASTRAZENECA-2006UW27707

PATIENT
  Age: 12150 Day
  Sex: Female

DRUGS (15)
  1. SEROQUEL [Suspect]
     Indication: SLEEP DISORDER
     Dosage: TOTAL DAILY DOSE 650 MG
     Route: 048
     Dates: start: 19980401
  2. SEROQUEL [Suspect]
     Indication: ANXIETY
     Dosage: TOTAL DAILY DOSE 650 MG
     Route: 048
     Dates: start: 19980401
  3. SEROQUEL [Suspect]
     Dosage: 200 MG - 600 MG
     Route: 048
     Dates: start: 19980428
  4. SEROQUEL [Suspect]
     Dosage: 200 MG - 600 MG
     Route: 048
     Dates: start: 19980428
  5. CLOZARIL [Concomitant]
  6. GEODON [Concomitant]
  7. HALDOL [Concomitant]
  8. NAVANE [Concomitant]
  9. RISPERDAL [Concomitant]
  10. THORAZINE [Concomitant]
  11. ZYPREXA [Concomitant]
  12. DEPAKOTE [Concomitant]
     Indication: DEPRESSION
     Dosage: 250 MG 3 QPM
     Dates: start: 19980428
  13. DEPAKOTE [Concomitant]
     Indication: CONVULSION
     Dosage: 250 MG 3 QPM
     Dates: start: 19980428
  14. WELLBUTRIN [Concomitant]
     Dates: start: 19980428
  15. TRAZODONE HCL [Concomitant]
     Indication: POOR QUALITY SLEEP
     Dosage: 50 MG - 100 MG
     Dates: start: 19970313

REACTIONS (8)
  - DEHYDRATION [None]
  - HYPERGLYCAEMIA [None]
  - HYPOGLYCAEMIA [None]
  - PANCREATITIS [None]
  - PANCREATITIS ACUTE [None]
  - PANCREATITIS CHRONIC [None]
  - PANCREATITIS RELAPSING [None]
  - TYPE 2 DIABETES MELLITUS [None]
